FAERS Safety Report 5393700-0 (Version None)
Quarter: 2007Q3

REPORT INFORMATION
  Report Type: 
  Country: None (occurrence: None)
  Receive Date: 20070723
  Receipt Date: 20070713
  Transmission Date: 20080115
  Serious: Yes (Other)
  Sender: FDA-Public Use
  Company Number: GB-AMGEN-US234503

PATIENT
  Sex: Female

DRUGS (4)
  1. ENBREL [Suspect]
     Indication: DRUG USE FOR UNKNOWN INDICATION
     Dosage: UNKNOWN
     Dates: start: 20050713
  2. ENBREL [Suspect]
     Dosage: UNKNOWN
     Dates: start: 20070101
  3. NSAID'S [Concomitant]
     Dosage: UNKNOWN
  4. METHOTREXATE [Concomitant]
     Dosage: UNKNOWN
     Route: 058

REACTIONS (1)
  - HERPES ZOSTER [None]
